FAERS Safety Report 6286150-6 (Version None)
Quarter: 2009Q3

REPORT INFORMATION
  Report Type: 
  Country: None (occurrence: None)
  Receive Date: 20090728
  Receipt Date: 20090701
  Transmission Date: 20100115
  Serious: Yes (Hospitalization, Other)
  Sender: FDA-Public Use
  Company Number: ZA-ABBOTT-09P-143-0583068-00

PATIENT
  Age: 29 Year
  Sex: Female
  Weight: 77.9 kg

DRUGS (3)
  1. ALUVIA TABLETS 200MG/50MG [Suspect]
     Indication: HIV INFECTION
     Dosage: FORM: 200/50 MILLIGRAMS
     Route: 048
     Dates: start: 20060720, end: 20090522
  2. EMTRICITABINE W/TENOFOVIR DISOPROXIL FUMARATE [Concomitant]
     Indication: HIV INFECTION
     Dosage: FORM: 200/300 MILLIGRAMS
     Route: 048
     Dates: start: 20060720, end: 20090203
  3. COMBIVIR [Concomitant]
     Indication: HIV INFECTION
     Dosage: FORM: 150/300 MILLIGRAMS
     Route: 048
     Dates: start: 20090203, end: 20090601

REACTIONS (1)
  - INTRA-UTERINE DEATH [None]
